FAERS Safety Report 11977515 (Version 3)
Quarter: 2016Q1

REPORT INFORMATION
  Report Type: Spontaneous
  Country: US (occurrence: US)
  Receive Date: 20160129
  Receipt Date: 20160308
  Transmission Date: 20160526
  Serious: Yes (Other)
  Sender: FDA-Public Use
  Company Number: US-BAYER-2016-015812

PATIENT
  Age: 33 Year
  Sex: Female
  Weight: 77.55 kg

DRUGS (1)
  1. MIRENA [Suspect]
     Active Substance: LEVONORGESTREL
     Indication: CONTRACEPTION
     Dosage: 20 MCG/24HR, CONT
     Route: 015
     Dates: start: 20160121, end: 20160121

REACTIONS (3)
  - Device difficult to use [None]
  - Uterine perforation [Recovered/Resolved]
  - Procedural pain [None]

NARRATIVE: CASE EVENT DATE: 20160121
